FAERS Safety Report 7290940-0 (Version None)
Quarter: 2011Q1

REPORT INFORMATION
  Report Type: 
  Country: None (occurrence: None)
  Receive Date: 20110214
  Receipt Date: 20110204
  Transmission Date: 20110831
  Serious: Yes (Hospitalization)
  Sender: FDA-Public Use
  Company Number: IN-BRISTOL-MYERS SQUIBB COMPANY-14830913

PATIENT
  Age: 30 Year
  Sex: Female

DRUGS (5)
  1. ABATACEPT [Suspect]
     Indication: SYSTEMIC LUPUS ERYTHEMATOSUS
     Route: 042
     Dates: start: 20090414, end: 20100316
  2. CALCIUM [Concomitant]
     Dates: start: 20090101
  3. PANTOPRAZOLE [Concomitant]
     Dates: start: 20090915, end: 20090929
  4. MYCOPHENOLATE MOFETIL [Suspect]
     Indication: SYSTEMIC LUPUS ERYTHEMATOSUS
  5. PREDNISOLONE [Suspect]
     Indication: SYSTEMIC LUPUS ERYTHEMATOSUS

REACTIONS (1)
  - JOINT EFFUSION [None]
